FAERS Safety Report 12389968 (Version 1)
Quarter: 2016Q2

REPORT INFORMATION
  Report Type: Spontaneous
  Country: US (occurrence: US)
  Receive Date: 20160520
  Receipt Date: 20160520
  Transmission Date: 20160815
  Serious: Yes (Hospitalization)
  Sender: FDA-Public Use
  Company Number: US-BAYER-2016-093752

PATIENT
  Age: 28 Year
  Sex: Male

DRUGS (1)
  1. KOGENATE FS [Suspect]
     Active Substance: ANTIHEMOPHILIC FACTOR, HUMAN RECOMBINANT
     Indication: FACTOR VIII DEFICIENCY
     Dosage: 6000 UNITS, QOD
     Route: 042
     Dates: start: 20160315

REACTIONS (3)
  - Aortic aneurysm repair [None]
  - Tooth extraction [None]
  - Heart valve operation [None]

NARRATIVE: CASE EVENT DATE: 20160507
